FAERS Safety Report 8932807 (Version 1)
Quarter: 2012Q4

REPORT INFORMATION
  Report Type: Spontaneous
  Country: US (occurrence: None)
  Receive Date: 20121127
  Receipt Date: 20121127
  Transmission Date: 20130627
  Serious: No
  Sender: FDA-Public Use
  Company Number: None

PATIENT
  Age: 44 Year
  Sex: Male
  Weight: 72.58 kg

DRUGS (1)
  1. LAMICTAL [Suspect]
     Indication: SEIZURES
     Route: 048
     Dates: start: 2009

REACTIONS (2)
  - Dizziness [None]
  - Convulsion [None]
